FAERS Safety Report 5218297-7 (Version None)
Quarter: 2007Q1

REPORT INFORMATION
  Report Type: 
  Country: None (occurrence: None)
  Receive Date: 20070124
  Receipt Date: 20070112
  Transmission Date: 20070707
  Serious: Yes (Other)
  Sender: FDA-Public Use
  Company Number: US-PFIZER INC-2007001788

PATIENT
  Sex: Male
  Weight: 85.7 kg

DRUGS (5)
  1. CHANTIX [Suspect]
     Indication: SMOKING CESSATION THERAPY
     Dates: start: 20061230, end: 20070110
  2. NICOTINE [Concomitant]
  3. RISPERIDONE [Concomitant]
  4. TRIHEXYPHENIDYL HCL [Concomitant]
  5. ALL OTHER THERAPEUTIC PRODUCTS [Concomitant]

REACTIONS (3)
  - BLOOD PRESSURE INCREASED [None]
  - DRUG INEFFECTIVE [None]
  - HALLUCINATION, AUDITORY [None]
